FAERS Safety Report 6418595-5 (Version None)
Quarter: 2009Q4

REPORT INFORMATION
  Report Type: 
  Country: None (occurrence: None)
  Receive Date: 20091028
  Receipt Date: 20091021
  Transmission Date: 20100525
  Serious: Yes (Death, Other)
  Sender: FDA-Public Use
  Company Number: PHHY2009DE46579

PATIENT
  Age: 60 Year
  Sex: Male

DRUGS (5)
  1. CYCLOSPORINE [Suspect]
     Indication: STEM CELL TRANSPLANT
  2. RITUXIMAB [Concomitant]
  3. TREOSULFAN [Concomitant]
     Indication: BONE MARROW CONDITIONING REGIMEN
     Dosage: 20 G/M2
  4. FLUDARABINE [Concomitant]
     Indication: BONE MARROW CONDITIONING REGIMEN
     Dosage: 150 MG/M2, UNK
  5. THYMOGLOBULIN [Concomitant]
     Indication: BONE MARROW CONDITIONING REGIMEN
     Dosage: 380 MG, UNK

REACTIONS (5)
  - ABDOMINAL NEOPLASM [None]
  - CHRONIC GRAFT VERSUS HOST DISEASE [None]
  - HAIRY CELL LEUKAEMIA [None]
  - LARGE INTESTINE PERFORATION [None]
  - LEUKAEMIC INFILTRATION EXTRAMEDULLARY [None]
